FAERS Safety Report 13776251 (Version 1)
Quarter: 2017Q3

REPORT INFORMATION
  Report Type: Spontaneous
  Country: FR (occurrence: FR)
  Receive Date: 20170721
  Receipt Date: 20170721
  Transmission Date: 20171127
  Serious: Yes (Hospitalization)
  Sender: FDA-Public Use
  Company Number: FR-TEVA-788116ROM

PATIENT
  Age: 68 Year
  Sex: Male

DRUGS (8)
  1. SMECTA [Concomitant]
     Active Substance: MONTMORILLONITE
  2. FLUOROURACILE ACCORD [Suspect]
     Active Substance: FLUOROURACIL
     Dosage: 2562 MILLIGRAM DAILY;
     Route: 042
     Dates: start: 20170606, end: 20170612
  3. OXALIPLATINE TEVA [Suspect]
     Active Substance: OXALIPLATIN
     Indication: ADENOCARCINOMA GASTRIC
     Dosage: 238 MILLIGRAM DAILY;
     Route: 042
     Dates: start: 20170606, end: 20170606
  4. EPIRUBICINE MYLAN [Suspect]
     Active Substance: EPIRUBICIN
     Indication: ADENOCARCINOMA GASTRIC
     Dosage: 92 MILLIGRAM DAILY;
     Route: 042
     Dates: start: 20170606, end: 20170606
  5. TARDYFERON [Concomitant]
     Active Substance: FERROUS SULFATE
  6. NISISCO 160 MG/12,5 MG [Concomitant]
     Dosage: VALSARTAN 160 MG +HYDROCHLOROTHIAZIDE 12.5 MG
  7. LOXEN LP 50 MG [Concomitant]
     Active Substance: NICARDIPINE
     Dosage: FORM: PROLONGED-RELEASE CAPSULE
  8. TIORFAN [Concomitant]
     Active Substance: RACECADOTRIL

REACTIONS (4)
  - Diarrhoea [Not Recovered/Not Resolved]
  - Behcet^s syndrome [Not Recovered/Not Resolved]
  - Mucosal inflammation [Not Recovered/Not Resolved]
  - Febrile neutropenia [Not Recovered/Not Resolved]

NARRATIVE: CASE EVENT DATE: 20170609
